FAERS Safety Report 6100689-5 (Version None)
Quarter: 2009Q1

REPORT INFORMATION
  Report Type: 
  Country: None (occurrence: None)
  Receive Date: 20090303
  Receipt Date: 20090219
  Transmission Date: 20090719
  Serious: Yes (Hospitalization)
  Sender: FDA-Public Use
  Company Number: FR-PFIZER INC-2008158664

PATIENT

DRUGS (6)
  1. SOLU-MEDROL [Suspect]
     Indication: SMALL INTESTINE CARCINOMA
     Dosage: 40 MG, CYCLIC
     Route: 042
  2. OXALIPLATIN [Suspect]
     Indication: SMALL INTESTINE CARCINOMA
     Dosage: 130 MG, CYCLIC
     Route: 042
  3. BEVACIZUMAB [Suspect]
     Indication: SMALL INTESTINE CARCINOMA
     Dosage: 275 MG, CYCLIC
     Route: 042
  4. FLUOROURACIL [Suspect]
     Indication: SMALL INTESTINE CARCINOMA
     Dosage: 3100 MG, CYCLIC
     Route: 042
  5. ONDANSETRON HYDROCHLORIDE [Suspect]
     Indication: SMALL INTESTINE CARCINOMA
     Dosage: 8 MG, CYCLIC
     Route: 042
  6. ALL OTHER THERAPEUTIC PRODUCTS [Suspect]
     Indication: SMALL INTESTINE CARCINOMA
     Dosage: 170 MG, CYCLIC
     Route: 042

REACTIONS (2)
  - CONFUSIONAL STATE [None]
  - ENCEPHALOPATHY [None]
